FAERS Safety Report 6760556-0 (Version None)
Quarter: 2010Q2

REPORT INFORMATION
  Report Type: 
  Country: None (occurrence: None)
  Receive Date: 20100607
  Receipt Date: 20100607
  Transmission Date: 20101027
  Serious: Yes (Hospitalization)
  Sender: FDA-Public Use
  Company Number: None

PATIENT
  Age: 79 Year
  Sex: Female
  Weight: 68.4 kg

DRUGS (6)
  1. REVLIMID [Suspect]
     Indication: MYELODYSPLASTIC SYNDROME
  2. ASPIRIN [Concomitant]
  3. AMLODIPINE [Concomitant]
  4. METOPROLOL TARTRATE [Concomitant]
  5. LASIX [Concomitant]
  6. CA [Concomitant]

REACTIONS (4)
  - DEEP VEIN THROMBOSIS [None]
  - GAIT DISTURBANCE [None]
  - RENAL FAILURE ACUTE [None]
  - WEIGHT BEARING DIFFICULTY [None]
